FAERS Safety Report 25874860 (Version 2)
Quarter: 2025Q4

REPORT INFORMATION
  Report Type: Report from Study
  Country: EU (occurrence: EU)
  Receive Date: 20251002
  Receipt Date: 20251011
  Transmission Date: 20260117
  Serious: Yes (Hospitalization)
  Sender: ABBVIE
  Company Number: EU-ABBVIE-6472446

PATIENT
  Age: 79 Year
  Sex: Male
  Weight: 80 kg

DRUGS (3)
  1. FOSCARBIDOPA\FOSLEVODOPA [Suspect]
     Active Substance: FOSCARBIDOPA\FOSLEVODOPA
     Indication: Parkinson^s disease
     Dosage: LD: 1.8ML, CR: LOW: 0.58ML/H, BASE: 0.78ML/H, HIGH: 0.84ML/H, ED: 0.30ML
     Route: 058
     Dates: start: 20250714, end: 20250920
  2. FOSCARBIDOPA\FOSLEVODOPA [Suspect]
     Active Substance: FOSCARBIDOPA\FOSLEVODOPA
     Dosage: LD: 1.8ML CR: LOW: 0.58ML/H ,BASE: 0.78ML/H ,HIGH: 0.84ML/H ,ED: 0.30ML.?LAST ADMIN DATE: 2025
     Route: 058
     Dates: start: 20250926
  3. FOSCARBIDOPA\FOSLEVODOPA [Suspect]
     Active Substance: FOSCARBIDOPA\FOSLEVODOPA
     Dosage: DOSE: LD: 1.8ML CR: LOW: 0.58ML/H BASE: 0.80ML/H HIGH: 0.84ML/H ED: 0.40ML,?DOSE START DATE: 2025
     Route: 058

REACTIONS (5)
  - Vomiting [Not Recovered/Not Resolved]
  - Blood electrolytes decreased [Not Recovered/Not Resolved]
  - Dysphagia [Not Recovered/Not Resolved]
  - Hypophagia [Not Recovered/Not Resolved]
  - Weight decreased [Not Recovered/Not Resolved]

NARRATIVE: CASE EVENT DATE: 20250101
